FAERS Safety Report 22288481 (Version 1)
Quarter: 2023Q2

REPORT INFORMATION
  Report Type: Spontaneous
  Country: US (occurrence: None)
  Receive Date: 20230503
  Receipt Date: 20230503
  Transmission Date: 20230721
  Serious: No
  Sender: FDA-Public Use
  Company Number: None

PATIENT
  Age: 34 Year
  Sex: Female
  Weight: 77.11 kg

DRUGS (1)
  1. BREXPIPRAZOLE [Suspect]
     Active Substance: BREXPIPRAZOLE

REACTIONS (4)
  - Gestational hypertension [None]
  - Bacterial vaginosis [None]
  - Maternal exposure during pregnancy [None]
  - Streptococcus test positive [None]

NARRATIVE: CASE EVENT DATE: 20191229
